FAERS Safety Report 6283097-6 (Version None)
Quarter: 2009Q3

REPORT INFORMATION
  Report Type: 
  Country: None (occurrence: None)
  Receive Date: 20090724
  Receipt Date: 20090717
  Transmission Date: 20100115
  Serious: Yes (Other)
  Sender: FDA-Public Use
  Company Number: A0794671A

PATIENT
  Age: 80 Year
  Sex: Male
  Weight: 77.3 kg

DRUGS (5)
  1. AVODART [Suspect]
     Dosage: .5MG PER DAY
     Route: 048
     Dates: start: 20081126, end: 20090506
  2. COUMADIN [Concomitant]
     Indication: ATRIAL FIBRILLATION
     Dosage: 5MG PER DAY
     Route: 048
  3. LASIX [Concomitant]
     Dosage: 40MG TWICE PER DAY
     Route: 048
     Dates: start: 20090401
  4. POTASSIUM CHLORIDE [Concomitant]
     Dosage: 20MG PER DAY
     Route: 048
     Dates: start: 20090401
  5. TENORMIN [Concomitant]
     Indication: HYPERTENSION
     Dosage: 25MG PER DAY
     Route: 048

REACTIONS (4)
  - HYPOALBUMINAEMIA [None]
  - NEPHROTIC SYNDROME [None]
  - OEDEMA [None]
  - PROTEIN URINE PRESENT [None]
